FAERS Safety Report 5267522-5 (Version None)
Quarter: 2007Q1

REPORT INFORMATION
  Report Type: 
  Country: None (occurrence: None)
  Receive Date: 20061213
  Receipt Date: 20030918
  Transmission Date: 20070707
  Serious: Yes (Hospitalization)
  Sender: FDA-Public Use
  Company Number: 2003UW11962

PATIENT
  Age: 50 Year
  Sex: Female

DRUGS (1)
  1. TAMOXIFEN CITRATE [Suspect]
     Indication: CARCINOMA IN SITU

REACTIONS (2)
  - HOT FLUSH [None]
  - VAGINAL HAEMORRHAGE [None]
